FAERS Safety Report 10868949 (Version 1)
Quarter: 2015Q1

REPORT INFORMATION
  Report Type: Spontaneous
  Country: US (occurrence: US)
  Receive Date: 20150225
  Receipt Date: 20150225
  Transmission Date: 20150721
  Serious: Yes (Other)
  Sender: FDA-Public Use
  Company Number: US-UNITED THERAPEUTICS-UNT-2015-001977

PATIENT
  Age: 61 Year
  Sex: Female
  Weight: 65.76 kg

DRUGS (3)
  1. TYVASO [Suspect]
     Active Substance: TREPROSTINIL
     Indication: PULMONARY HYPERTENSION
     Dosage: 18-54 ?Q, QID
     Dates: start: 20140425, end: 20150203
  2. MORPHINE [Concomitant]
     Active Substance: MORPHINE
     Indication: PRODUCT USED FOR UNKNOWN INDICATION
  3. TYVASO [Suspect]
     Active Substance: TREPROSTINIL
     Dosage: 6 ?Q, QD (1 BREATH DAILY), PERIODICALLY
     Dates: end: 20150203

REACTIONS (6)
  - Inappropriate schedule of drug administration [Unknown]
  - Heart rate increased [Unknown]
  - Oxygen saturation decreased [Not Recovered/Not Resolved]
  - Nausea [Recovered/Resolved]
  - Therapy cessation [Unknown]
  - Treatment noncompliance [Unknown]

NARRATIVE: CASE EVENT DATE: 201404
